FAERS Safety Report 4538570-5 (Version None)
Quarter: 2004Q4

REPORT INFORMATION
  Report Type: 
  Country: None (occurrence: None)
  Receive Date: 20041222
  Receipt Date: 20041220
  Transmission Date: 20050328
  Serious: Yes (Other)
  Sender: FDA-Public Use
  Company Number: GBWYE265808DEC04

PATIENT
  Age: 30 Year
  Sex: Female

DRUGS (1)
  1. EFFEXOR [Suspect]
     Dosage: OVERDOSE AMOUNT, ORAL
     Route: 048
     Dates: start: 20040101, end: 20040101

REACTIONS (3)
  - BLOOD PROLACTIN INCREASED [None]
  - CONVERSION DISORDER [None]
  - OVERDOSE [None]
